FAERS Safety Report 14348772 (Version 4)
Quarter: 2018Q1

REPORT INFORMATION
  Report Type: Report from Study
  Country: BR (occurrence: BR)
  Receive Date: 20180104
  Receipt Date: 20180308
  Transmission Date: 20180509
  Serious: Yes (Other)
  Sender: FDA-Public Use
  Company Number: BR-ROCHE-2046306

PATIENT
  Sex: Female
  Weight: 68 kg

DRUGS (8)
  1. ARAVA [Concomitant]
     Active Substance: LEFLUNOMIDE
  2. MABTHERA [Suspect]
     Active Substance: RITUXIMAB
     Indication: RHEUMATOID ARTHRITIS
     Route: 042
     Dates: start: 20171222
  3. PARACETAMOL [Concomitant]
     Active Substance: ACETAMINOPHEN
     Route: 065
  4. LOSARTAN. [Concomitant]
     Active Substance: LOSARTAN
     Indication: HYPERTENSION
  5. DEXCHLORPHENIRAMINE [Concomitant]
     Active Substance: DEXCHLORPHENIRAMINE
     Route: 048
  6. RANITIDINE (INTRAVENOUS) [Concomitant]
     Route: 042
  7. MABTHERA [Suspect]
     Active Substance: RITUXIMAB
     Route: 042
     Dates: start: 20171207
  8. SALINE [Concomitant]
     Active Substance: SODIUM CHLORIDE
     Route: 065

REACTIONS (13)
  - Malaise [Recovered/Resolved]
  - Speech disorder [Recovered/Resolved]
  - Tongue disorder [Recovered/Resolved]
  - Pruritus [Recovered/Resolved]
  - Cough [Recovered/Resolved]
  - Hypertension [Recovered/Resolved]
  - Tachycardia [Recovered/Resolved]
  - Blood pressure increased [Recovered/Resolved]
  - Dyspnoea [Recovered/Resolved]
  - Laryngeal oedema [Recovered/Resolved]
  - Head discomfort [Recovered/Resolved]
  - Dysphagia [Recovered/Resolved]
  - Anxiety [Recovered/Resolved]
